FAERS Safety Report 17981630 (Version 1)
Quarter: 2020Q3

REPORT INFORMATION
  Report Type: Spontaneous
  Country: GB (occurrence: GB)
  Receive Date: 20200706
  Receipt Date: 20200706
  Transmission Date: 20201103
  Serious: Yes (Other)
  Sender: FDA-Public Use
  Company Number: GB-AUROBINDO-08-AUR-04763

PATIENT
  Age: 34 Year
  Sex: Female

DRUGS (1)
  1. RISPERIDONE FILM?COATED TABLETS 0.5 MG [Suspect]
     Active Substance: RISPERIDONE
     Indication: SCHIZOAFFECTIVE DISORDER
     Dosage: UNK
     Route: 065

REACTIONS (6)
  - Hyperprolactinaemia [Recovered/Resolved]
  - Somatic symptom disorder of pregnancy [Recovered/Resolved]
  - Abdominal distension [Recovered/Resolved]
  - Psychotic disorder [Recovered/Resolved]
  - Delusion [Recovered/Resolved]
  - Amenorrhoea [Recovered/Resolved]
